FAERS Safety Report 21847804 (Version 1)
Quarter: 2023Q1

REPORT INFORMATION
  Report Type: Report from Study
  Country: US (occurrence: US)
  Receive Date: 20230111
  Receipt Date: 20230111
  Transmission Date: 20230418
  Serious: Yes (Hospitalization, Other)
  Sender: FDA-Public Use
  Company Number: US-ABBVIE-4264172

PATIENT
  Age: 81 Year
  Sex: Female

DRUGS (14)
  1. VENCLEXTA [Suspect]
     Active Substance: VENETOCLAX
     Indication: Chronic lymphocytic leukaemia
     Route: 048
     Dates: start: 20221215
  2. One-A-Day Womens Formula Oral Table [Concomitant]
     Indication: Product used for unknown indication
  3. Covaryx Oral Tablet 1.25-2.5 MG [Concomitant]
     Indication: Product used for unknown indication
  4. CholestOff Oral Tablet 450 MG [Concomitant]
     Indication: Product used for unknown indication
  5. Gabapentin Oral Capsule 300 MG [Concomitant]
     Indication: Product used for unknown indication
  6. Allopurinol Oral [Concomitant]
     Indication: Product used for unknown indication
  7. PROCHLORPERAZINE MALEATE [Concomitant]
     Active Substance: PROCHLORPERAZINE MALEATE
     Indication: Product used for unknown indication
  8. SERTRALINE HYDROCHLORIDE [Concomitant]
     Active Substance: SERTRALINE HYDROCHLORIDE
     Indication: Product used for unknown indication
  9. Progesterone Oral Capsule [Concomitant]
     Indication: Product used for unknown indication
  10. Levothyroxine Sodium Oral Tablet 75 [Concomitant]
     Indication: Product used for unknown indication
  11. CLONAZEPAM [Concomitant]
     Active Substance: CLONAZEPAM
     Indication: Product used for unknown indication
  12. VITAMIN D3 [Concomitant]
     Active Substance: CHOLECALCIFEROL
     Indication: Product used for unknown indication
  13. PANTOPRAZOLE SODIUM [Concomitant]
     Active Substance: PANTOPRAZOLE SODIUM
     Indication: Product used for unknown indication
  14. Vitamin B12 Oral Tablet 500 MCG [Concomitant]
     Indication: Product used for unknown indication

REACTIONS (1)
  - Syncope [Unknown]

NARRATIVE: CASE EVENT DATE: 20230108
